FAERS Safety Report 15684041 (Version 1)
Quarter: 2018Q4

REPORT INFORMATION
  Report Type: Spontaneous
  Country: FR (occurrence: FR)
  Receive Date: 20181204
  Receipt Date: 20181204
  Transmission Date: 20190205
  Serious: Yes (Other)
  Sender: FDA-Public Use
  Company Number: FR-ACCORD-094670

PATIENT
  Age: 78 Year
  Sex: Female
  Weight: 54 kg

DRUGS (3)
  1. FOLINIC ACID [Suspect]
     Active Substance: LEUCOVORIN
     Indication: RECTOSIGMOID CANCER METASTATIC
     Route: 042
     Dates: start: 20171206, end: 20171206
  2. IRINOTECAN [Suspect]
     Active Substance: IRINOTECAN
     Indication: RECTOSIGMOID CANCER METASTATIC
     Route: 042
     Dates: start: 20171206, end: 20171206
  3. FLUOROURACIL. [Suspect]
     Active Substance: FLUOROURACIL
     Indication: RECTOSIGMOID CANCER METASTATIC
     Route: 042
     Dates: start: 20171206, end: 20171206

REACTIONS (4)
  - Chest pain [Recovered/Resolved]
  - Dyspnoea [Recovered/Resolved]
  - Laryngeal pain [Recovered/Resolved]
  - Hot flush [Recovered/Resolved]

NARRATIVE: CASE EVENT DATE: 20171206
